FAERS Safety Report 18308536 (Version 2)
Quarter: 2020Q4

REPORT INFORMATION
  Report Type: Spontaneous
  Country: US (occurrence: US)
  Receive Date: 20200924
  Receipt Date: 20201224
  Transmission Date: 20210113
  Serious: Yes (Hospitalization, Other)
  Sender: FDA-Public Use
  Company Number: US-009507513-2009USA008922

PATIENT
  Sex: Female
  Weight: 83.45 kg

DRUGS (1)
  1. JANUVIA [Suspect]
     Active Substance: SITAGLIPTIN PHOSPHATE
     Dosage: 100 MILLIGRAM, ONCE DAILY
     Route: 048
     Dates: start: 20150815, end: 20170811

REACTIONS (14)
  - Metastatic neoplasm [Unknown]
  - Insomnia [Unknown]
  - Musculoskeletal pain [Unknown]
  - Spinal pain [Unknown]
  - Colonoscopy [Unknown]
  - Diabetic complication [Unknown]
  - Dyspepsia [Unknown]
  - Ruptured cerebral aneurysm [Unknown]
  - Diarrhoea [Unknown]
  - Pancreatic carcinoma [Unknown]
  - Anxiety disorder [Unknown]
  - Gait disturbance [Unknown]
  - Hyperlipidaemia [Unknown]
  - Musculoskeletal stiffness [Unknown]

NARRATIVE: CASE EVENT DATE: 201710
